FAERS Safety Report 6314564-4 (Version None)
Quarter: 2009Q3

REPORT INFORMATION
  Report Type: 
  Country: None (occurrence: None)
  Receive Date: 20090819
  Receipt Date: 20090813
  Transmission Date: 20100115
  Serious: Yes (Death, Hospitalization, Other)
  Sender: FDA-Public Use
  Company Number: PHHY2009BR34132

PATIENT
  Sex: Male

DRUGS (6)
  1. DIOVAN [Suspect]
     Indication: HYPERTENSION
     Dosage: 160 MG, UNK
     Route: 048
     Dates: start: 20070101
  2. DIOVAN [Suspect]
     Dosage: 160 MG, UNK
     Dates: start: 20090601
  3. BAMIFIX [Concomitant]
     Indication: LUNG DISORDER
     Dosage: 1 TABLET EVERY 12 HOURS
     Route: 048
  4. METHYLDOPA [Concomitant]
     Indication: HYPERTENSION
     Dosage: 2 TABLETS EVERY 8 HOURS
     Route: 048
  5. DOXAZOSIN [Concomitant]
     Indication: PROSTATIC DISORDER
     Dosage: HALF A TABLET
     Route: 048
  6. CARDIL [Concomitant]
     Indication: CARDIAC DISORDER
     Route: 048

REACTIONS (6)
  - EMPHYSEMA [None]
  - FATIGUE [None]
  - MULTI-ORGAN FAILURE [None]
  - PNEUMONIA [None]
  - RENAL FAILURE [None]
  - RESPIRATORY ARREST [None]
